FAERS Safety Report 23074682 (Version 1)
Quarter: 2023Q4

REPORT INFORMATION
  Report Type: Other
  Country: CN (occurrence: CN)
  Receive Date: 20231017
  Receipt Date: 20231017
  Transmission Date: 20240109
  Serious: Yes (Other)
  Sender: FDA-Public Use
  Company Number: CN-GE HEALTHCARE-2023CSU009039

PATIENT
  Age: 59 Year
  Sex: Female
  Weight: 46 kg

DRUGS (2)
  1. OMNIPAQUE [Suspect]
     Active Substance: IOHEXOL
     Indication: Angiogram
     Dosage: 50 ML, SINGLE
     Route: 042
     Dates: start: 20231001, end: 20231001
  2. OMNIPAQUE [Suspect]
     Active Substance: IOHEXOL
     Indication: Cerebral infarction

REACTIONS (6)
  - Hypoglycaemia [Recovering/Resolving]
  - Temperature intolerance [Recovering/Resolving]
  - Pallor [Recovering/Resolving]
  - Cyanosis [Recovering/Resolving]
  - Pyrexia [Recovering/Resolving]
  - Chills [Recovering/Resolving]

NARRATIVE: CASE EVENT DATE: 20231001
